FAERS Safety Report 23492269 (Version 2)
Quarter: 2024Q1

REPORT INFORMATION
  Report Type: Report from Study
  Country: US (occurrence: US)
  Receive Date: 20240207
  Receipt Date: 20240227
  Transmission Date: 20240410
  Serious: No
  Sender: FDA-Public Use
  Company Number: US-ORG100014127-2023000930

PATIENT
  Age: 26 Year
  Sex: Female

DRUGS (8)
  1. METOPIRONE [Suspect]
     Active Substance: METYRAPONE
     Indication: Adrenal gland cancer
     Dosage: 3 CAPSULES BY MOUTH THREE TIMES DAILY
     Route: 048
     Dates: start: 20230325
  2. LYSODREN [Suspect]
     Active Substance: MITOTANE
     Indication: Adrenal gland cancer
     Dosage: 5 TABLETS BY MOUTH TWO TIMES DAILY
     Route: 048
     Dates: start: 20230802
  3. CITALOPRAM TAB 10MG [Concomitant]
     Indication: Product used for unknown indication
  4. CODEINE/APAP TAB 60-300MG [Concomitant]
     Indication: Product used for unknown indication
  5. CORTEF TAB 10MG [Concomitant]
     Indication: Product used for unknown indication
  6. ONDANSETRON TAB 4MG ODT [Concomitant]
     Indication: Product used for unknown indication
  7. TYLENOL CAP 325MG [Concomitant]
     Indication: Product used for unknown indication
  8. ZANTAC 360 TAB 10MG [Concomitant]
     Indication: Product used for unknown indication

REACTIONS (2)
  - Wrong technique in product usage process [Unknown]
  - Off label use [Unknown]
